FAERS Safety Report 10213965 (Version 1)
Quarter: 2014Q2

REPORT INFORMATION
  Report Type: Spontaneous
  Country: CA (occurrence: None)
  Receive Date: 20140529
  Receipt Date: 20140529
  Transmission Date: 20141212
  Serious: Yes (Other)
  Sender: FDA-Public Use
  Company Number: 2362944

PATIENT
  Age: 2 Year
  Sex: Female
  Weight: 10.5 kg

DRUGS (4)
  1. PROPOFOL [Suspect]
     Indication: SEDATION
     Dosage: 1.4 MG/KG MILLIGRAM(S)/KILOGRAM (UNKNOWN) INTRAVENOUS (NOT OTHERWISE SPECIFIED)
     Route: 042
  2. PROPOFOL [Suspect]
     Indication: ANALGESIC THERAPY
     Dosage: 1.4 MG/KG MILLIGRAM(S)/KILOGRAM (UNKNOWN) INTRAVENOUS (NOT OTHERWISE SPECIFIED)
     Route: 042
  3. KETAMINE [Suspect]
     Indication: SEDATION
     Dosage: 1.4 MG/KG MILLIGRAM(S)/KILOGRAM (UNKNOWN) INTRAVENOUS (NOT OTHERWISE SPECIFIED)
     Route: 042
  4. KETAMINE [Suspect]
     Indication: ANALGESIC THERAPY
     Dosage: 1.4 MG/KG MILLIGRAM(S)/KILOGRAM (UNKNOWN) INTRAVENOUS (NOT OTHERWISE SPECIFIED)
     Route: 042

REACTIONS (4)
  - Laryngospasm [None]
  - Croup infectious [None]
  - Apnoeic attack [None]
  - Hypoxia [None]
